FAERS Safety Report 20298746 (Version 1)
Quarter: 2022Q1

REPORT INFORMATION
  Report Type: Report from Study
  Country: FR (occurrence: FR)
  Receive Date: 20220105
  Receipt Date: 20220105
  Transmission Date: 20220423
  Serious: Yes (Life-Threatening, Other)
  Sender: FDA-Public Use
  Company Number: FR-MYLANLABS-2022M1000409

PATIENT
  Age: 18 Year
  Sex: Male

DRUGS (12)
  1. CISPLATIN [Suspect]
     Active Substance: CISPLATIN
     Indication: Chondroblastoma
     Dosage: 0.19 GRAM, 0.19 G/M2
     Route: 065
  2. CISPLATIN [Suspect]
     Active Substance: CISPLATIN
     Indication: Osteosarcoma
  3. METHOTREXATE [Suspect]
     Active Substance: METHOTREXATE
     Indication: Chondroblastoma
     Dosage: 23.6 GRAM, 23.6 G/M2
     Route: 065
  4. METHOTREXATE [Suspect]
     Active Substance: METHOTREXATE
     Indication: Osteosarcoma
  5. IFOSFAMIDE [Suspect]
     Active Substance: IFOSFAMIDE
     Indication: Chondroblastoma
     Dosage: 74.5 GRAM, 74.5 G/M2
     Route: 065
  6. IFOSFAMIDE [Suspect]
     Active Substance: IFOSFAMIDE
     Indication: Osteosarcoma
  7. DOXORUBICIN HYDROCHLORIDE [Suspect]
     Active Substance: DOXORUBICIN HYDROCHLORIDE
     Indication: Chondroblastoma
     Dosage: 0.23 GRAM, 0.23 G/M2.
     Route: 065
  8. DOXORUBICIN HYDROCHLORIDE [Suspect]
     Active Substance: DOXORUBICIN HYDROCHLORIDE
     Indication: Osteosarcoma
  9. ETOPOSIDE [Suspect]
     Active Substance: ETOPOSIDE
     Indication: Chondroblastoma
     Dosage: 1.6 GRAM, 1.6 G/M2
     Route: 065
  10. ETOPOSIDE [Suspect]
     Active Substance: ETOPOSIDE
     Indication: Osteosarcoma
  11. CYCLOPHOSPHAMIDE [Suspect]
     Active Substance: CYCLOPHOSPHAMIDE
     Indication: Chondroblastoma
     Dosage: 2.9 GRAM, 2.9 G/ M2
     Route: 065
  12. CYCLOPHOSPHAMIDE [Suspect]
     Active Substance: CYCLOPHOSPHAMIDE
     Indication: Osteosarcoma

REACTIONS (7)
  - Gastrointestinal disorder [Unknown]
  - Bone marrow failure [Unknown]
  - Cholestasis [Unknown]
  - Hepatitis [Unknown]
  - Acute kidney injury [Unknown]
  - Renal tubular dysfunction [Unknown]
  - Hypertension [Unknown]

NARRATIVE: CASE EVENT DATE: 20160101
